FAERS Safety Report 8163323-9 (Version None)
Quarter: 2012Q1

REPORT INFORMATION
  Report Type: 
  Country: None (occurrence: None)
  Receive Date: 20120224
  Receipt Date: 20110601
  Transmission Date: 20120608
  Serious: No
  Sender: FDA-Public Use
  Company Number: US-PFIZER INC-K201100667

PATIENT
  Age: 50 Year
  Sex: Female
  Weight: 63.492 kg

DRUGS (1)
  1. FLECTOR [Suspect]
     Dosage: UNK
     Route: 061
     Dates: start: 20110101, end: 20110526

REACTIONS (3)
  - FALL [None]
  - BLOOD PRESSURE DECREASED [None]
  - DIZZINESS [None]
